FAERS Safety Report 5096254-1 (Version None)
Quarter: 2006Q3

REPORT INFORMATION
  Report Type: 
  Country: None (occurrence: None)
  Receive Date: 20060905
  Receipt Date: 20060824
  Transmission Date: 20061208
  Serious: Yes (Hospitalization)
  Sender: FDA-Public Use
  Company Number: US-MERCK-0608USA05933

PATIENT

DRUGS (1)
  1. PRIMAXIN [Suspect]
     Indication: INFECTION
     Route: 065

REACTIONS (1)
  - FEBRILE NEUTROPENIA [None]
